FAERS Safety Report 8165269-9 (Version None)
Quarter: 2012Q1

REPORT INFORMATION
  Report Type: 
  Country: None (occurrence: None)
  Receive Date: 20120222
  Receipt Date: 20120222
  Transmission Date: 20120608
  Serious: Yes (Hospitalization)
  Sender: FDA-Public Use
  Company Number: None

PATIENT
  Sex: Male
  Weight: 95.1 kg

DRUGS (1)
  1. RIFAMPICIN [Suspect]
     Indication: MULTIPLE SYSTEM ATROPHY
     Dosage: 300 MG BID
     Dates: start: 20111019, end: 20120105

REACTIONS (3)
  - HEPATIC FAILURE [None]
  - RENAL FAILURE [None]
  - HAEMOLYTIC ANAEMIA [None]
